FAERS Safety Report 23074991 (Version 1)
Quarter: 2023Q4

REPORT INFORMATION
  Report Type: Spontaneous
  Country: CR (occurrence: CR)
  Receive Date: 20231017
  Receipt Date: 20231017
  Transmission Date: 20240110
  Serious: Yes (Disabling, Other)
  Sender: FDA-Public Use
  Company Number: CR-PFIZER INC-PV202300164841

PATIENT
  Age: 64 Year
  Sex: Female

DRUGS (3)
  1. INLYTA [Suspect]
     Active Substance: AXITINIB
     Dosage: 10 MG, DAILY
     Dates: start: 2022
  2. INLYTA [Suspect]
     Active Substance: AXITINIB
     Dosage: 5 MG, TWO DOSES, DAILY
  3. PEMBROLIZUMAB [Concomitant]
     Active Substance: PEMBROLIZUMAB
     Dosage: 1 DF, EVERY 22 DAYS

REACTIONS (14)
  - Injury [Unknown]
  - Mobility decreased [Unknown]
  - Abdominal pain upper [Unknown]
  - Food intolerance [Unknown]
  - Diarrhoea [Unknown]
  - Decreased appetite [Unknown]
  - Weight decreased [Unknown]
  - Alopecia [Unknown]
  - Dry skin [Unknown]
  - Reflux gastritis [Unknown]
  - Hypertension [Unknown]
  - Oral discomfort [Unknown]
  - Eating disorder [Unknown]
  - Nausea [Unknown]

NARRATIVE: CASE EVENT DATE: 20230301
